FAERS Safety Report 9687302 (Version 3)
Quarter: 2020Q3

REPORT INFORMATION
  Report Type: Report from Study
  Country: EC (occurrence: EC)
  Receive Date: 20131114
  Receipt Date: 20131206
  Transmission Date: 20201104
  Serious: Yes (Hospitalization)
  Sender: FDA-Public Use
  Company Number: EC-ROCHE-1294188

PATIENT
  Age: 75 Year
  Sex: Female

DRUGS (2)
  1. IBANDRONIC ACID. [Suspect]
     Active Substance: IBANDRONIC ACID
     Indication: OSTEOPOROSIS
     Route: 042
     Dates: start: 20110220
  2. INSULIN [Concomitant]
     Active Substance: INSULIN NOS
     Indication: DIABETES MELLITUS
     Route: 042

REACTIONS (4)
  - Lower limb fracture [Recovering/Resolving]
  - Wrist fracture [Recovering/Resolving]
  - Rib fracture [Unknown]
  - Scapula fracture [Unknown]

NARRATIVE: CASE EVENT DATE: 201306
